FAERS Safety Report 17227925 (Version 1)
Quarter: 2020Q1

REPORT INFORMATION
  Report Type: Spontaneous
  Country: CA (occurrence: CA)
  Receive Date: 20200103
  Receipt Date: 20200103
  Transmission Date: 20200409
  Serious: Yes (Other)
  Sender: FDA-Public Use
  Company Number: CA-TEVA-2019-CA-1162134

PATIENT
  Age: 54 Year
  Sex: Female

DRUGS (2)
  1. HYDROXYCHLOROQUINE SULFATE. [Concomitant]
     Active Substance: HYDROXYCHLOROQUINE SULFATE
  2. GABAPENTIN. [Suspect]
     Active Substance: GABAPENTIN
     Indication: RHEUMATOID ARTHRITIS
     Route: 065

REACTIONS (3)
  - Cellulitis [Unknown]
  - Drug ineffective for unapproved indication [Unknown]
  - Off label use [Unknown]
